FAERS Safety Report 25043377 (Version 2)
Quarter: 2025Q1

REPORT INFORMATION
  Report Type: Spontaneous
  Country: JP (occurrence: JP)
  Receive Date: 20250305
  Receipt Date: 20250321
  Transmission Date: 20250409
  Serious: Yes (Death, Other)
  Sender: MERCK SHARP & DOHME LLC
  Company Number: JP-009507513-2260261

PATIENT

DRUGS (1)
  1. KEYTRUDA [Suspect]
     Active Substance: PEMBROLIZUMAB
     Indication: Gingival cancer
     Route: 041
     Dates: start: 20220602

REACTIONS (2)
  - Death [Fatal]
  - Immune-mediated dermatitis [Unknown]
